FAERS Safety Report 13443859 (Version 2)
Quarter: 2017Q2

REPORT INFORMATION
  Report Type: Spontaneous
  Country: ZA (occurrence: ZA)
  Receive Date: 20170414
  Receipt Date: 20170531
  Transmission Date: 20170830
  Serious: Yes (Other)
  Sender: FDA-Public Use
  Company Number: ZA-GILEAD-2017-0267689

PATIENT
  Sex: Male

DRUGS (2)
  1. TACROLIMUS. [Concomitant]
     Active Substance: TACROLIMUS
  2. TENOFOVIR DISOPROXIL FUMARATE. [Suspect]
     Active Substance: TENOFOVIR DISOPROXIL FUMARATE
     Indication: HIV INFECTION
     Route: 065

REACTIONS (5)
  - Drug ineffective [Unknown]
  - Hepatitis B DNA increased [Not Recovered/Not Resolved]
  - Drug resistance [Not Recovered/Not Resolved]
  - Transplant [Unknown]
  - Enzyme level increased [Not Recovered/Not Resolved]
